FAERS Safety Report 4689616-5 (Version None)
Quarter: 2005Q2

REPORT INFORMATION
  Report Type: 
  Country: None (occurrence: None)
  Receive Date: 20050609
  Receipt Date: 20041202
  Transmission Date: 20051028
  Serious: Yes (Hospitalization)
  Sender: FDA-Public Use
  Company Number: 430042M04USA

PATIENT
  Age: 39 Year
  Sex: Female

DRUGS (3)
  1. NOVANTRONE [Suspect]
     Indication: ACUTE LEUKAEMIA
     Dates: start: 20040925, end: 20040929
  2. ETOPOSIDE [Suspect]
     Dates: start: 20040925, end: 20040929
  3. CYTARABINE [Suspect]
     Dates: start: 20040925, end: 20040929

REACTIONS (6)
  - DIARRHOEA [None]
  - FEBRILE NEUTROPENIA [None]
  - HYPOTENSION [None]
  - MUCOSAL INFLAMMATION [None]
  - OESOPHAGITIS [None]
  - TACHYCARDIA [None]
